FAERS Safety Report 11989517 (Version 8)
Quarter: 2018Q2

REPORT INFORMATION
  Report Type: Report from Study
  Country: IL (occurrence: IL)
  Receive Date: 20160202
  Receipt Date: 20180525
  Transmission Date: 20180711
  Serious: Yes (Hospitalization)
  Sender: FDA-Public Use
  Company Number: PHHY2013IL117888

PATIENT
  Age: 72 Year
  Sex: Female
  Weight: 39 kg

DRUGS (2)
  1. SANDOSTATIN LAR DEPOT [Suspect]
     Active Substance: OCTREOTIDE ACETATE
     Indication: CARCINOID TUMOUR
  2. SANDOSTATIN LAR DEPOT [Suspect]
     Active Substance: OCTREOTIDE ACETATE
     Indication: NEUROENDOCRINE TUMOUR
     Dosage: 30 MG, QMO (Q4W)
     Route: 030
     Dates: start: 20131002

REACTIONS (14)
  - Gastrointestinal necrosis [Recovered/Resolved]
  - Intestinal obstruction [Recovered/Resolved]
  - Abdominal pain [Recovered/Resolved]
  - Gastrointestinal infection [Not Recovered/Not Resolved]
  - Abdominal pain [Recovering/Resolving]
  - Haematemesis [Unknown]
  - Pyrexia [Recovered/Resolved]
  - Constipation [Recovered/Resolved]
  - Post procedural pneumonia [Unknown]
  - Weight decreased [Not Recovered/Not Resolved]
  - Diarrhoea [Recovering/Resolving]
  - Pain [Unknown]
  - Lymphoma [Unknown]
  - Steatorrhoea [Recovered/Resolved]

NARRATIVE: CASE EVENT DATE: 20131013
